FAERS Safety Report 8482038-0 (Version None)
Quarter: 2012Q3

REPORT INFORMATION
  Report Type: 
  Country: None (occurrence: None)
  Receive Date: 20120702
  Receipt Date: 20120619
  Transmission Date: 20120928
  Serious: No
  Sender: FDA-Public Use
  Company Number: US-ASTRAZENECA-2012SE41464

PATIENT
  Age: 51 Year
  Sex: Female

DRUGS (3)
  1. ZETIA [Concomitant]
  2. CRESTOR [Suspect]
     Route: 048
  3. WELCHOL [Concomitant]

REACTIONS (1)
  - VISUAL IMPAIRMENT [None]
